FAERS Safety Report 25599373 (Version 2)
Quarter: 2025Q3

REPORT INFORMATION
  Report Type: Report from Study
  Country: CA (occurrence: CA)
  Receive Date: 20250724
  Receipt Date: 20250918
  Transmission Date: 20251021
  Serious: Yes (Hospitalization)
  Sender: CELLTRION
  Company Number: CA-CELLTRION INC.-2025CA024166

PATIENT

DRUGS (10)
  1. TRASTUZUMAB [Suspect]
     Active Substance: TRASTUZUMAB
     Indication: Breast cancer
     Route: 065
  2. PERJETA [Suspect]
     Active Substance: PERTUZUMAB
     Indication: Breast cancer
     Route: 042
  3. PERJETA [Suspect]
     Active Substance: PERTUZUMAB
     Indication: Breast cancer
     Route: 042
  4. PERJETA [Suspect]
     Active Substance: PERTUZUMAB
     Route: 042
  5. PERJETA [Suspect]
     Active Substance: PERTUZUMAB
     Route: 042
  6. ASPIRIN [Concomitant]
     Active Substance: ASPIRIN
  7. CARBOPLATIN [Concomitant]
     Active Substance: CARBOPLATIN
  8. DOCETAXEL [Concomitant]
     Active Substance: DOCETAXEL
  9. ESCITALOPRAM OXALATE [Concomitant]
     Active Substance: ESCITALOPRAM OXALATE
  10. CHOLECALCIFEROL [Concomitant]
     Active Substance: CHOLECALCIFEROL

REACTIONS (3)
  - Blood pressure systolic increased [Recovered/Resolved]
  - Heart rate decreased [Recovered/Resolved]
  - Gastroenteritis [Recovered/Resolved]
